FAERS Safety Report 17436059 (Version 3)
Quarter: 2020Q1

REPORT INFORMATION
  Report Type: Report from Study
  Country: CN (occurrence: CN)
  Receive Date: 20200219
  Receipt Date: 20200309
  Transmission Date: 20200409
  Serious: Yes (Hospitalization)
  Sender: FDA-Public Use
  Company Number: CN-KARYOPHARM THERAPEUTICS, INC.-2020KPT000172

PATIENT
  Age: 70 Year
  Sex: Male

DRUGS (13)
  1. ONDANSETRON [Concomitant]
     Active Substance: ONDANSETRON
     Indication: NAUSEA
     Dosage: 16 MG, QD
     Route: 048
     Dates: start: 20200204, end: 20200206
  2. RABEPRAZOLE SODIUM. [Concomitant]
     Active Substance: RABEPRAZOLE SODIUM
     Indication: PROPHYLAXIS AGAINST GASTROINTESTINAL ULCER
     Dosage: 10 ML, QD
     Route: 048
     Dates: start: 20200203, end: 20200209
  3. SELINEXOR [Suspect]
     Active Substance: SELINEXOR
     Indication: PLASMA CELL MYELOMA
     Dosage: 80 MG, 2X/WEEK
     Route: 048
     Dates: start: 20200103, end: 20200202
  4. INSULIN [Concomitant]
     Active Substance: INSULIN NOS
     Indication: STEROID DIABETES
     Dosage: UNK
     Route: 042
     Dates: start: 20200122, end: 20200127
  5. ASPIRIN. [Concomitant]
     Active Substance: ASPIRIN
     Indication: THROMBOSIS PROPHYLAXIS
     Dosage: 100 MG, QD
     Route: 048
     Dates: start: 20200122, end: 20200127
  6. ACARBOSE. [Concomitant]
     Active Substance: ACARBOSE
     Indication: STEROID DIABETES
     Dosage: 300 MG, QD
     Route: 048
     Dates: start: 20200122, end: 20200127
  7. GLIMEPIRIDE. [Concomitant]
     Active Substance: GLIMEPIRIDE
     Indication: STEROID DIABETES
     Dosage: 2 MG, QD
     Route: 048
     Dates: start: 20200122, end: 20200127
  8. FAT SOLUBLE VITAMIN (II) [Concomitant]
     Indication: NUTRITIONAL SUPPLEMENTATION
     Dosage: 10 ML, QD
     Route: 042
     Dates: start: 20200122, end: 20200127
  9. GLUCOSE AND SODIUM CHLORIDE [Concomitant]
     Active Substance: DEXTROSE\SODIUM CHLORIDE
     Indication: FLUID REPLACEMENT
     Dosage: 500 ML, QD
     Route: 042
     Dates: start: 20200122, end: 20200127
  10. POTASSIUM CHLORIDE. [Concomitant]
     Active Substance: POTASSIUM CHLORIDE
     Indication: MINERAL SUPPLEMENTATION
     Dosage: 10 ML, QD
     Route: 042
     Dates: start: 20200122, end: 20200127
  11. FIVE VITAMINS [Concomitant]
     Indication: VITAMIN B COMPLEX DEFICIENCY
     Dosage: 30 ML, QD
     Dates: start: 20200122, end: 20200127
  12. OPRELVEKIN. [Concomitant]
     Active Substance: OPRELVEKIN
     Indication: PLATELET COUNT DECREASED
     Dosage: 3 MG, QD
     Route: 050
     Dates: start: 20200122, end: 20200127
  13. DEXAMETHASONE. [Suspect]
     Active Substance: DEXAMETHASONE
     Indication: PLASMA CELL MYELOMA
     Dosage: UNK UNK, 2X/WEEK
     Route: 048
     Dates: start: 20200103, end: 20200202

REACTIONS (1)
  - Mouth ulceration [Recovered/Resolved]

NARRATIVE: CASE EVENT DATE: 20200122
